FAERS Safety Report 6617442-6 (Version None)
Quarter: 2010Q1

REPORT INFORMATION
  Report Type: 
  Country: None (occurrence: None)
  Receive Date: 20100302
  Receipt Date: 20100216
  Transmission Date: 20100710
  Serious: Yes (Other)
  Sender: FDA-Public Use
  Company Number: 20100063

PATIENT
  Age: 42 Year
  Sex: Female

DRUGS (2)
  1. EPINEPHRINE [Suspect]
     Indication: ANAPHYLACTIC REACTION
     Dosage: 0.3 MG TIMES 2 SUBCUTANEOUS
     Route: 058
  2. DIPHENHYDRAMINE HYDROCHLORIDE [Concomitant]

REACTIONS (5)
  - ELECTROCARDIOGRAM ST SEGMENT ABNORMAL [None]
  - HYPERHIDROSIS [None]
  - SINUS TACHYCARDIA [None]
  - STRESS CARDIOMYOPATHY [None]
  - TROPONIN I INCREASED [None]
